FAERS Safety Report 5881563-6 (Version None)
Quarter: 2008Q3

REPORT INFORMATION
  Report Type: 
  Country: None (occurrence: None)
  Receive Date: 20080912
  Receipt Date: 20080717
  Transmission Date: 20090109
  Serious: No
  Sender: FDA-Public Use
  Company Number: US-ABBOTT-08P-163-0460660-00

PATIENT
  Sex: Female
  Weight: 84.444 kg

DRUGS (4)
  1. HUMIRA [Suspect]
     Indication: RHEUMATOID ARTHRITIS
     Route: 058
     Dates: start: 20071031
  2. VICODIN [Concomitant]
     Indication: PAIN
     Route: 048
  3. FOLIC ACID [Concomitant]
     Indication: VITAMIN SUPPLEMENTATION
     Route: 048
  4. UNKNOWN HYPERTENSION MEDICATION [Concomitant]
     Indication: HYPERTENSION
     Route: 048

REACTIONS (8)
  - ARTHRALGIA [None]
  - BONE PAIN [None]
  - DRUG DOSE OMISSION [None]
  - DYSPHONIA [None]
  - FEELING ABNORMAL [None]
  - MUSCULOSKELETAL CHEST PAIN [None]
  - PAIN [None]
  - SENSORY DISTURBANCE [None]
